FAERS Safety Report 19182543 (Version 1)
Quarter: 2021Q2

REPORT INFORMATION
  Report Type: Spontaneous
  Country: SA (occurrence: SA)
  Receive Date: 20210426
  Receipt Date: 20210426
  Transmission Date: 20210717
  Serious: Yes (Hospitalization, Other)
  Sender: FDA-Public Use
  Company Number: SA-INSUD PHARMA-2104SA00475

PATIENT

DRUGS (2)
  1. PROGESTERONE. [Suspect]
     Active Substance: PROGESTERONE
     Indication: VAGINAL HAEMORRHAGE
     Dosage: UNKNOWN
     Route: 065
  2. XELJANZ [Suspect]
     Active Substance: TOFACITINIB CITRATE
     Indication: RHEUMATOID ARTHRITIS
     Dosage: 11 MG (HIGH DOSE)
     Route: 065

REACTIONS (13)
  - Abdominal pain [Unknown]
  - Nausea [Unknown]
  - Lymphopenia [Unknown]
  - Splenic infarction [Unknown]
  - Abdominal pain upper [Unknown]
  - Decreased appetite [Unknown]
  - Pallor [Unknown]
  - Cardiac ventricular thrombosis [Recovered/Resolved]
  - Vomiting [Unknown]
  - Myocardial infarction [Recovered/Resolved]
  - Constipation [Unknown]
  - Dehydration [Unknown]
  - Vaginal haemorrhage [Unknown]
